FAERS Safety Report 6344847-3 (Version None)
Quarter: 2009Q3

REPORT INFORMATION
  Report Type: 
  Country: None (occurrence: None)
  Receive Date: 20090821
  Receipt Date: 20090605
  Transmission Date: 20100115
  Serious: Yes (Hospitalization)
  Sender: FDA-Public Use
  Company Number: 8047416

PATIENT
  Age: 42 Year
  Sex: Female
  Weight: 59.4 kg

DRUGS (2)
  1. CIMZIA [Suspect]
     Indication: CROHN'S DISEASE
     Dosage: 400 MG SC
     Route: 058
     Dates: start: 20081118
  2. FLAGYL [Concomitant]

REACTIONS (1)
  - RECTAL FISSURE [None]
